FAERS Safety Report 25784369 (Version 1)
Quarter: 2025Q3

REPORT INFORMATION
  Report Type: Spontaneous
  Country: US (occurrence: US)
  Receive Date: 20250910
  Receipt Date: 20250910
  Transmission Date: 20251021
  Serious: Yes (Other)
  Sender: SANDOZ
  Company Number: US-SANDOZ-SDZ2025US063943

PATIENT
  Sex: Female

DRUGS (1)
  1. ALBUTEROL SULFATE [Suspect]
     Active Substance: ALBUTEROL SULFATE
     Indication: Asthma
     Route: 065

REACTIONS (5)
  - Cataract [Unknown]
  - Incorrect dose administered [Unknown]
  - Drug dose omission by device [Unknown]
  - Drug delivery system issue [Unknown]
  - Device defective [Unknown]
